FAERS Safety Report 5909271-3 (Version None)
Quarter: 2008Q4

REPORT INFORMATION
  Report Type: 
  Country: None (occurrence: None)
  Receive Date: 20081006
  Receipt Date: 20080925
  Transmission Date: 20090506
  Serious: Yes (Disabling, Other)
  Sender: FDA-Public Use
  Company Number: US-PFIZER INC-2006079959

PATIENT
  Sex: Male
  Weight: 111.1 kg

DRUGS (2)
  1. NAVANE [Suspect]
     Indication: SCHIZOPHRENIA
     Route: 065
     Dates: start: 19780101, end: 19850101
  2. ALL OTHER THERAPEUTIC PRODUCTS [Concomitant]
     Indication: SKIN EXFOLIATION
     Dosage: TEXT:UNKNOWN-FREQ:UNKNOWN
     Route: 065
     Dates: start: 19850101

REACTIONS (13)
  - ASTHENIA [None]
  - BODY HEIGHT DECREASED [None]
  - CONTUSION [None]
  - DISTURBANCE IN ATTENTION [None]
  - DYSTONIA [None]
  - IMMUNE SYSTEM DISORDER [None]
  - NASOPHARYNGITIS [None]
  - PAIN [None]
  - RESORPTION BONE INCREASED [None]
  - SKIN DISORDER [None]
  - SKIN EXFOLIATION [None]
  - THERMAL BURN [None]
  - WEIGHT INCREASED [None]
